FAERS Safety Report 21254334 (Version 1)
Quarter: 2022Q3

REPORT INFORMATION
  Report Type: Spontaneous
  Country: US (occurrence: None)
  Receive Date: 20220825
  Receipt Date: 20220825
  Transmission Date: 20221026
  Serious: No
  Sender: FDA-Public Use
  Company Number: 2022A287945

PATIENT
  Sex: Female
  Weight: 70.3 kg

DRUGS (1)
  1. FASENRA [Suspect]
     Active Substance: BENRALIZUMAB
     Indication: Hypereosinophilic syndrome
     Dosage: 30MG/ML
     Route: 058

REACTIONS (4)
  - Injection site discolouration [Unknown]
  - Incorrect dose administered by device [Unknown]
  - Product dose omission issue [Unknown]
  - Device leakage [Unknown]
